FAERS Safety Report 23162914 (Version 1)
Quarter: 2023Q4

REPORT INFORMATION
  Report Type: Spontaneous
  Country: US (occurrence: None)
  Receive Date: 20231109
  Receipt Date: 20231109
  Transmission Date: 20240109
  Serious: No
  Sender: FDA-Public Use
  Company Number: US-ROCHE-3348324

PATIENT
  Sex: Female

DRUGS (1)
  1. COTELLIC [Suspect]
     Active Substance: COBIMETINIB
     Indication: Illness
     Dosage: TAKE 1 TABLET BY MOUTH ONCE A DAY AND THEN STOP FOR 7 DAYS.
     Route: 048
     Dates: start: 202304

REACTIONS (6)
  - Pain [Unknown]
  - Nausea [Unknown]
  - Fatigue [Unknown]
  - Diarrhoea [Unknown]
  - Feeding disorder [Unknown]
  - Off label use [Unknown]
